FAERS Safety Report 9134647 (Version 1)
Quarter: 2013Q1

REPORT INFORMATION
  Report Type: Spontaneous
  Country: IT (occurrence: IT)
  Receive Date: 20130304
  Receipt Date: 20130304
  Transmission Date: 20140127
  Serious: Yes (Life-Threatening)
  Sender: FDA-Public Use
  Company Number: PHHY2013IT020346

PATIENT
  Age: 30 Year
  Sex: Male

DRUGS (3)
  1. LEPONEX [Suspect]
     Indication: SCHIZOPHRENIA
     Dosage: 300 MG, DAY
     Route: 048
     Dates: start: 20130122, end: 20130202
  2. VALPROIC ACID [Concomitant]
     Dosage: 1.5 G, UNK
  3. HALOPERIDOL [Concomitant]
     Dosage: 7.5 MG, UNK

REACTIONS (3)
  - Respiratory distress [Recovering/Resolving]
  - Intracardiac thrombus [Recovering/Resolving]
  - Myocarditis [Recovering/Resolving]
